FAERS Safety Report 8581263-8 (Version None)
Quarter: 2012Q3

REPORT INFORMATION
  Report Type: 
  Country: None (occurrence: None)
  Receive Date: 20120809
  Receipt Date: 20120731
  Transmission Date: 20120928
  Serious: Yes (Hospitalization)
  Sender: FDA-Public Use
  Company Number: AT-JNJFOC-20120602751

PATIENT
  Sex: Female
  Weight: 84.9 kg

DRUGS (6)
  1. ESOMEPRAZOLE MAGNESIUM [Concomitant]
     Indication: GASTRITIS
     Dates: start: 20111117
  2. PALIPERIDONE [Suspect]
     Indication: SCHIZOPHRENIA
     Route: 030
  3. PROTHIPENDYL [Concomitant]
     Indication: SLEEP DISORDER
     Dates: start: 20111105, end: 20120519
  4. CYPROTERONE ACETATE W/ETHINYLESTRADIOL [Concomitant]
     Indication: CONTRACEPTION
  5. VALPROATE SODIUM [Concomitant]
     Indication: AFFECTIVE DISORDER
  6. LORAZEPAM [Concomitant]
     Indication: SLEEP DISORDER
     Route: 065

REACTIONS (1)
  - PSYCHOTIC DISORDER [None]
